FAERS Safety Report 13572018 (Version 1)
Quarter: 2017Q2

REPORT INFORMATION
  Report Type: Spontaneous
  Country: FR (occurrence: FR)
  Receive Date: 20170523
  Receipt Date: 20170523
  Transmission Date: 20170830
  Serious: Yes (Death)
  Sender: FDA-Public Use
  Company Number: PHHY2017FR074616

PATIENT
  Age: 10 Day
  Sex: Male
  Weight: 3.92 kg

DRUGS (4)
  1. CAMPATH [Suspect]
     Active Substance: ALEMTUZUMAB
     Indication: LYMPHOHISTIOCYTOSIS
     Dosage: 0.5 MG/KG, UNK
     Route: 042
     Dates: start: 20161030, end: 20161030
  2. SANDIMMUN [Suspect]
     Active Substance: CYCLOSPORINE
     Indication: PRODUCT USED FOR UNKNOWN INDICATION
     Dosage: 50 MG/ML, UNK
     Route: 042
     Dates: start: 20161030, end: 20161030
  3. POLARAMINE [Suspect]
     Active Substance: DEXCHLORPHENIRAMINE MALEATE
     Indication: PRODUCT USED FOR UNKNOWN INDICATION
     Dosage: 1.25 MG, UNK
     Route: 042
     Dates: start: 20161030, end: 20161030
  4. SOLU-MEDROL [Suspect]
     Active Substance: METHYLPREDNISOLONE SODIUM SUCCINATE
     Indication: PRODUCT USED FOR UNKNOWN INDICATION
     Dosage: UNK
     Route: 042
     Dates: start: 20161030, end: 20161030

REACTIONS (2)
  - Condition aggravated [Fatal]
  - Herpes virus infection [Fatal]

NARRATIVE: CASE EVENT DATE: 20161030
